FAERS Safety Report 7651519-1 (Version None)
Quarter: 2011Q3

REPORT INFORMATION
  Report Type: 
  Country: None (occurrence: None)
  Receive Date: 20110802
  Receipt Date: 20110728
  Transmission Date: 20111222
  Serious: Yes (Death)
  Sender: FDA-Public Use
  Company Number: PHHO2011CN11309

PATIENT
  Sex: Male
  Weight: 56 kg

DRUGS (8)
  1. ALISKIREN [Suspect]
     Indication: CARDIAC FAILURE
     Dosage: UNK
     Route: 048
     Dates: start: 20110505, end: 20110602
  2. ENALAPRIL MALEATE [Suspect]
     Indication: CARDIAC FAILURE
     Dosage: UNK
     Route: 048
     Dates: start: 20110301, end: 20110504
  3. BLINDED ALISKIREN [Suspect]
     Dosage: NO TREATMENT
  4. ENALAPRIL MALEATE [Suspect]
     Dosage: NO TREATMENT
  5. BLINDED NO TREATMENT RECEIVED [Suspect]
     Dosage: NO TREATMENT
  6. TRIMETAZIDINE [Concomitant]
     Dosage: 20 MG, BID
     Dates: start: 20100223
  7. ISOSORBIDE MONONITRATE [Concomitant]
     Dosage: 40 MG, QD
     Dates: start: 20110223
  8. FELODIPINE [Concomitant]
     Indication: HYPERTENSION
     Dosage: 5 MG, QD
     Route: 048
     Dates: start: 20060101

REACTIONS (1)
  - CARDIAC FAILURE [None]
